FAERS Safety Report 18537920 (Version 1)
Quarter: 2020Q4

REPORT INFORMATION
  Report Type: Spontaneous
  Country: US (occurrence: US)
  Receive Date: 20201123
  Receipt Date: 20201123
  Transmission Date: 20210114
  Serious: No
  Sender: FDA-Public Use
  Company Number: US-ELI_LILLY_AND_COMPANY-US202003012864

PATIENT
  Sex: Female

DRUGS (16)
  1. HUMULIN 70/30 [Suspect]
     Active Substance: INSULIN HUMAN
     Dosage: 95 U, UNKNOWN
     Route: 065
  2. HUMULIN 70/30 [Suspect]
     Active Substance: INSULIN HUMAN
     Indication: DIABETES MELLITUS
     Dosage: 95 U, UNKNOWN
     Route: 065
  3. HUMULIN 70/30 [Suspect]
     Active Substance: INSULIN HUMAN
     Dosage: UNK UNK, UNKNOWN
     Route: 065
  4. HUMULIN 70/30 [Suspect]
     Active Substance: INSULIN HUMAN
     Indication: DIABETES MELLITUS
     Dosage: 95 U, UNKNOWN
     Route: 065
  5. HUMULIN 70/30 [Suspect]
     Active Substance: INSULIN HUMAN
     Indication: DIABETES MELLITUS
     Dosage: 95 U, UNKNOWN
     Route: 065
  6. HUMULIN 70/30 [Suspect]
     Active Substance: INSULIN HUMAN
     Dosage: 95 U, UNKNOWN
     Route: 065
  7. HUMULIN 70/30 [Suspect]
     Active Substance: INSULIN HUMAN
     Dosage: UNK UNK, UNKNOWN
     Route: 065
  8. HUMULIN 70/30 [Suspect]
     Active Substance: INSULIN HUMAN
     Dosage: 95 U, UNKNOWN
     Route: 065
  9. HUMULIN 70/30 [Suspect]
     Active Substance: INSULIN HUMAN
     Dosage: 95 U, UNKNOWN
     Route: 065
  10. HUMULIN 70/30 [Suspect]
     Active Substance: INSULIN HUMAN
     Dosage: 95 U, UNKNOWN
     Route: 065
  11. HUMULIN 70/30 [Suspect]
     Active Substance: INSULIN HUMAN
     Dosage: 95 U, UNKNOWN
     Route: 065
  12. HUMULIN 70/30 [Suspect]
     Active Substance: INSULIN HUMAN
     Indication: DIABETES MELLITUS
     Dosage: 95 U, UNKNOWN
     Route: 065
  13. HUMULIN 70/30 [Suspect]
     Active Substance: INSULIN HUMAN
     Dosage: 95 U, UNKNOWN
     Route: 065
  14. HUMULIN 70/30 [Suspect]
     Active Substance: INSULIN HUMAN
     Dosage: 95 U, UNKNOWN
     Route: 065
  15. HUMULIN 70/30 [Suspect]
     Active Substance: INSULIN HUMAN
     Indication: DIABETES MELLITUS
     Dosage: 95 U, UNKNOWN
     Route: 065
  16. HUMULIN 70/30 [Suspect]
     Active Substance: INSULIN HUMAN
     Indication: DIABETES MELLITUS
     Dosage: 95 U, UNKNOWN
     Route: 065

REACTIONS (2)
  - Feeling abnormal [Unknown]
  - Product dose omission issue [Unknown]
